FAERS Safety Report 8420355-0 (Version None)
Quarter: 2012Q2

REPORT INFORMATION
  Report Type: 
  Country: None (occurrence: None)
  Receive Date: 20120607
  Receipt Date: 20120530
  Transmission Date: 20120825
  Serious: Yes (Death)
  Sender: FDA-Public Use
  Company Number: US-TEVA-340698USA

PATIENT
  Age: 44 Year
  Sex: Female

DRUGS (3)
  1. INTERFERON BETA-1A [Suspect]
  2. NATALIZUMAB [Suspect]
  3. COPAXONE [Suspect]
     Indication: MULTIPLE SCLEROSIS
     Route: 058

REACTIONS (1)
  - COMPLETED SUICIDE [None]
